FAERS Safety Report 17504086 (Version 2)
Quarter: 2020Q2

REPORT INFORMATION
  Report Type: Report from Study
  Country: IT (occurrence: IT)
  Receive Date: 20200305
  Receipt Date: 20200506
  Transmission Date: 20200713
  Serious: Yes (Other)
  Sender: FDA-Public Use
  Company Number: PHHY2018IT006568

PATIENT
  Age: 50 Year
  Sex: Female

DRUGS (6)
  1. TRAMETINIB [Suspect]
     Active Substance: TRAMETINIB
     Indication: MALIGNANT MELANOMA
     Dosage: 2 MG, UNK
     Route: 048
     Dates: start: 20171124, end: 20180930
  2. TAFINLAR [Suspect]
     Active Substance: DABRAFENIB MESYLATE
     Indication: MALIGNANT MELANOMA
     Dosage: 300 MG, UNK
     Route: 048
     Dates: start: 20171124
  3. FOLINA [Concomitant]
     Indication: VITAMIN SUPPLEMENTATION
     Dosage: 5 OT
     Route: 048
     Dates: start: 20180829, end: 20180928
  4. MERITENE [Concomitant]
     Indication: NUTRITIONAL SUPPLEMENTATION
     Dosage: 200 OT
     Route: 048
     Dates: start: 20191106
  5. TRAMETINIB [Suspect]
     Active Substance: TRAMETINIB
     Dosage: UNK
     Route: 048
     Dates: start: 20181001, end: 20181007
  6. TRAMETINIB [Suspect]
     Active Substance: TRAMETINIB
     Dosage: UNK
     Route: 048
     Dates: start: 20181008

REACTIONS (7)
  - Fall [Recovered/Resolved]
  - Tinea manuum [Recovered/Resolved]
  - Dermatophytosis [Recovered/Resolved]
  - Asthenia [Not Recovered/Not Resolved]
  - Myalgia [Recovered/Resolved]
  - Epilepsy [Recovered/Resolved]
  - Visual field defect [Not Recovered/Not Resolved]

NARRATIVE: CASE EVENT DATE: 20180101
